FAERS Safety Report 15056981 (Version 1)
Quarter: 2018Q2

REPORT INFORMATION
  Report Type: Spontaneous
  Country: US (occurrence: US)
  Receive Date: 20180624
  Receipt Date: 20180624
  Transmission Date: 20180711
  Serious: No
  Sender: FDA-Public Use
  Company Number: US-ASTRAZENECA-2018SE70881

PATIENT
  Age: 27896 Day
  Sex: Female
  Weight: 105.2 kg

DRUGS (1)
  1. BYDUREON [Suspect]
     Active Substance: EXENATIDE
     Indication: TYPE 2 DIABETES MELLITUS
     Route: 058
     Dates: start: 20180520

REACTIONS (9)
  - Asthenia [Recovered/Resolved]
  - Adverse event [Recovered/Resolved]
  - Chest pain [Recovered/Resolved]
  - Eructation [Recovered/Resolved]
  - Insomnia [Recovered/Resolved]
  - Diarrhoea [Recovered/Resolved]
  - Pain [Recovered/Resolved]
  - Vomiting [Recovered/Resolved]
  - Nausea [Recovered/Resolved]

NARRATIVE: CASE EVENT DATE: 20180520
